FAERS Safety Report 18639949 (Version 1)
Quarter: 2020Q4

REPORT INFORMATION
  Report Type: Spontaneous
  Country: US (occurrence: US)
  Receive Date: 20201220
  Receipt Date: 20201220
  Transmission Date: 20210114
  Serious: No
  Sender: FDA-Public Use
  Company Number: US-PACIRA-202000066

PATIENT
  Age: 63 Year
  Sex: Male
  Weight: 77.11 kg

DRUGS (2)
  1. ROPIVACAINE. [Suspect]
     Active Substance: ROPIVACAINE HYDROCHLORIDE
     Indication: PAIN MANAGEMENT
     Dosage: 20 CC
     Dates: start: 20200313, end: 20200313
  2. EXPAREL [Suspect]
     Active Substance: BUPIVACAINE
     Indication: PAIN MANAGEMENT
     Dosage: 133 MG
     Dates: start: 20200313, end: 20200313

REACTIONS (4)
  - Dizziness [Recovered/Resolved]
  - Dyspepsia [Recovered/Resolved]
  - Chills [Recovered/Resolved]
  - Labelled drug-drug interaction medication error [Unknown]

NARRATIVE: CASE EVENT DATE: 20200313
